FAERS Safety Report 4309335-4 (Version None)
Quarter: 2004Q1

REPORT INFORMATION
  Report Type: 
  Country: None (occurrence: None)
  Receive Date: 20040302
  Receipt Date: 20040227
  Transmission Date: 20041129
  Serious: Yes (Other)
  Sender: FDA-Public Use
  Company Number: FR-GLAXOSMITHKLINE-B0324882A

PATIENT
  Sex: Male

DRUGS (2)
  1. IMIGRANE [Suspect]
     Indication: MIGRAINE
     Route: 045
  2. ACETYLSALICYLIC ACID + CAFFEINE [Suspect]
     Indication: MIGRAINE
     Route: 048

REACTIONS (3)
  - DRUG DEPENDENCE [None]
  - DRY MOUTH [None]
  - KERATOCONJUNCTIVITIS SICCA [None]
